FAERS Safety Report 18587498 (Version 4)
Quarter: 2021Q4

REPORT INFORMATION
  Report Type: Spontaneous
  Country: JP (occurrence: JP)
  Receive Date: 20201207
  Receipt Date: 20211221
  Transmission Date: 20220303
  Serious: Yes (Life-Threatening, Hospitalization, Disabling, Other)
  Sender: FDA-Public Use
  Company Number: JP-MSD-M2020-25754

PATIENT
  Age: 88 Year
  Sex: Female
  Weight: 55 kg

DRUGS (13)
  1. BRIDION [Suspect]
     Active Substance: SUGAMMADEX
     Indication: Neuromuscular blockade reversal
     Dosage: 200 MILLIGRAM, ONCE
     Route: 042
     Dates: start: 20201001, end: 20201001
  2. DIPRIVAN [Concomitant]
     Active Substance: PROPOFOL
     Indication: Anaesthesia procedure
     Dosage: 1744 MILLIGRAM
     Route: 042
     Dates: start: 20201001, end: 20201001
  3. DIPRIVAN [Concomitant]
     Active Substance: PROPOFOL
     Indication: Sedation
  4. KAKODIN D [Concomitant]
     Indication: Blood pressure management
     Dosage: 1640 MILLIGRAM
     Route: 042
     Dates: start: 20201001, end: 20201001
  5. PHENYLEPHRINE HYDROCHLORIDE [Concomitant]
     Active Substance: PHENYLEPHRINE HYDROCHLORIDE
     Indication: Blood pressure management
     Dosage: 0.17 MILLIGRAM
     Route: 042
     Dates: start: 20201001, end: 20201001
  6. LEVOBUPIVACAINE HYDROCHLORIDE [Concomitant]
     Active Substance: LEVOBUPIVACAINE HYDROCHLORIDE
     Indication: Analgesic therapy
     Dosage: 25 MILLILITER
     Route: 008
     Dates: start: 20201001
  7. REMIFENTANIL HYDROCHLORIDE [Concomitant]
     Active Substance: REMIFENTANIL HYDROCHLORIDE
     Indication: Anaesthesia procedure
     Dosage: 1400 MILLIGRAM
     Route: 042
     Dates: start: 20201001, end: 20201001
  8. REMIFENTANIL HYDROCHLORIDE [Concomitant]
     Active Substance: REMIFENTANIL HYDROCHLORIDE
     Indication: Analgesic therapy
  9. FENTANYL CITRATE [Concomitant]
     Active Substance: FENTANYL CITRATE
     Indication: Analgesic therapy
     Dosage: 47 MILLIGRAM
     Route: 008
     Dates: start: 20201001, end: 20201001
  10. ROCURONIUM BROMIDE [Concomitant]
     Active Substance: ROCURONIUM BROMIDE
     Indication: Anaesthesia procedure
     Dosage: 140 MILLIGRAM
     Route: 042
     Dates: start: 20201001, end: 20201001
  11. CHLORHEXIDINE [CHLORHEXIDINE GLUCONATE] [Concomitant]
     Dosage: UNK
     Route: 051
     Dates: start: 20201001, end: 20201001
  12. ISODINE [Concomitant]
     Active Substance: POVIDONE-IODINE
     Dosage: UNK
     Route: 051
     Dates: start: 20201001, end: 20201001
  13. OLANEXIDINE GLUCONATE [Concomitant]
     Active Substance: OLANEXIDINE GLUCONATE
     Dosage: UNK
     Route: 051
     Dates: start: 20201001, end: 20201001

REACTIONS (5)
  - Bronchospasm [Recovered/Resolved with Sequelae]
  - Blood pressure decreased [Recovered/Resolved with Sequelae]
  - Bradycardia [Recovering/Resolving]
  - Hypoxic-ischaemic encephalopathy [Recovering/Resolving]
  - Anaphylactic reaction [Unknown]

NARRATIVE: CASE EVENT DATE: 20201001
